FAERS Safety Report 18280628 (Version 4)
Quarter: 2021Q1

REPORT INFORMATION
  Report Type: Report from Study
  Country: FR (occurrence: FR)
  Receive Date: 20200917
  Receipt Date: 20210106
  Transmission Date: 20210419
  Serious: Yes (Death, Life-Threatening, Hospitalization, Other)
  Sender: FDA-Public Use
  Company Number: FR-GILEAD-2019-0385864

PATIENT
  Sex: Male
  Weight: 60 kg

DRUGS (3)
  1. FLUDARABINE [Suspect]
     Active Substance: FLUDARABINE PHOSPHATE
     Indication: BONE MARROW CONDITIONING REGIMEN
     Dosage: 25 MG/M2
     Route: 042
     Dates: start: 20190112, end: 20190114
  2. CYCLOPHOSPHAMIDE. [Suspect]
     Active Substance: CYCLOPHOSPHAMIDE
     Indication: BONE MARROW CONDITIONING REGIMEN
     Dosage: 900 MG/M2
     Route: 042
     Dates: start: 20190114, end: 20190114
  3. KTE?X19 [Suspect]
     Active Substance: AXICABTAGENE CILOLEUCEL
     Indication: ACUTE LYMPHOCYTIC LEUKAEMIA
     Dosage: 68 ML
     Route: 042
     Dates: start: 20190124, end: 20190124

REACTIONS (5)
  - Hypotension [Recovered/Resolved]
  - Septic shock [Fatal]
  - Hypotension [Recovered/Resolved]
  - Pyrexia [Recovered/Resolved]
  - Cytokine release syndrome [Recovered/Resolved]

NARRATIVE: CASE EVENT DATE: 20190116
